FAERS Safety Report 7180019-0 (Version None)
Quarter: 2010Q4

REPORT INFORMATION
  Report Type: 
  Country: None (occurrence: None)
  Receive Date: 20101221
  Receipt Date: 20101207
  Transmission Date: 20110411
  Serious: Yes (Other)
  Sender: FDA-Public Use
  Company Number: FR-PFIZER INC-2010116386

PATIENT
  Age: 64 Year
  Sex: Male
  Weight: 60.5 kg

DRUGS (5)
  1. XALATAN [Suspect]
     Indication: OCULAR HYPERTENSION
     Dosage: UNK
     Dates: start: 20021127
  2. XALATAN [Suspect]
     Dosage: UNK
     Dates: start: 20080716, end: 20100916
  3. XALATAN [Suspect]
     Dosage: UNK
     Dates: start: 20100927, end: 20101110
  4. XALATAN [Suspect]
     Dosage: UNK
     Dates: start: 20100101
  5. TIMOPTOL [Suspect]
     Indication: INTRAOCULAR PRESSURE INCREASED
     Dosage: UNK
     Route: 047
     Dates: start: 20010606, end: 20080701

REACTIONS (28)
  - ANAEMIA [None]
  - BALANCE DISORDER [None]
  - CARDIAC DISORDER [None]
  - CATARACT [None]
  - DIPLOPIA [None]
  - DIZZINESS [None]
  - EAR DISORDER [None]
  - EYE IRRITATION [None]
  - FATIGUE [None]
  - GRANULOCYTE COUNT INCREASED [None]
  - HEAD DISCOMFORT [None]
  - HEADACHE [None]
  - HEART RATE DECREASED [None]
  - HYPOAESTHESIA [None]
  - LACRIMATION INCREASED [None]
  - LYMPHOPENIA [None]
  - NERVOUS SYSTEM DISORDER [None]
  - NEUTROPHILIA [None]
  - NIGHTMARE [None]
  - PALPITATIONS [None]
  - PHOTOPSIA [None]
  - RASH [None]
  - SENSATION OF HEAVINESS [None]
  - TINNITUS [None]
  - VERTIGO POSITIONAL [None]
  - VISUAL ACUITY REDUCED [None]
  - VISUAL IMPAIRMENT [None]
  - VITREOUS DISORDER [None]
